FAERS Safety Report 25199508 (Version 1)
Quarter: 2025Q2

REPORT INFORMATION
  Report Type: Spontaneous
  Country: US (occurrence: US)
  Receive Date: 20250415
  Receipt Date: 20250415
  Transmission Date: 20250716
  Serious: No
  Sender: GILEAD
  Company Number: US-GILEAD-2025-0709752

PATIENT

DRUGS (1)
  1. TRODELVY [Suspect]
     Active Substance: SACITUZUMAB GOVITECAN-HZIY
     Indication: Triple negative breast cancer
     Route: 065

REACTIONS (14)
  - Alopecia [Unknown]
  - Dry eye [Unknown]
  - Dry skin [Unknown]
  - Sensitive skin [Unknown]
  - Vomiting [Unknown]
  - Weight decreased [Unknown]
  - Apathy [Unknown]
  - Asthenia [Unknown]
  - Dizziness [Unknown]
  - Anaemia [Unknown]
  - Muscle spasms [Unknown]
  - Fatigue [Unknown]
  - White blood cell count decreased [Unknown]
  - Rash [Unknown]
